FAERS Safety Report 14537428 (Version 2)
Quarter: 2018Q1

REPORT INFORMATION
  Report Type: Report from Study
  Country: US (occurrence: US)
  Receive Date: 20180215
  Receipt Date: 20180305
  Transmission Date: 20180509
  Serious: Yes (Hospitalization)
  Sender: FDA-Public Use
  Company Number: US-ACTELION-A-US2017-156894

PATIENT
  Age: 42 Year
  Sex: Male
  Weight: 61.22 kg

DRUGS (8)
  1. PREDNISONE. [Concomitant]
     Active Substance: PREDNISONE
     Dosage: UNK
  2. DEMADEX [Concomitant]
     Active Substance: TORSEMIDE
     Dosage: UNK
  3. CELLCEPT [Concomitant]
     Active Substance: MYCOPHENOLATE MOFETIL\MYCOPHENOLATE MOFETIL HYDROCHLORIDE
     Dosage: UNK
  4. DECARA [Concomitant]
  5. OPSUMIT [Suspect]
     Active Substance: MACITENTAN
     Indication: PULMONARY HYPERTENSION
     Dosage: 10 MG, QD
     Route: 048
  6. SILDENAFIL CITRATE. [Concomitant]
     Active Substance: SILDENAFIL CITRATE
  7. VITAMIN D3 [Concomitant]
     Active Substance: CHOLECALCIFEROL
  8. ADEMPAS [Concomitant]
     Active Substance: RIOCIGUAT
     Dosage: UNK

REACTIONS (7)
  - Road traffic accident [Unknown]
  - Dizziness [Recovering/Resolving]
  - Pain [Unknown]
  - Drug dose omission [Unknown]
  - Haemoptysis [Unknown]
  - Dyspnoea [Unknown]
  - Pain in jaw [Unknown]

NARRATIVE: CASE EVENT DATE: 20171211
